FAERS Safety Report 14591702 (Version 3)
Quarter: 2018Q2

REPORT INFORMATION
  Report Type: Spontaneous
  Country: ES (occurrence: ES)
  Receive Date: 20180302
  Receipt Date: 20180412
  Transmission Date: 20180711
  Serious: Yes (Death, Hospitalization, Other)
  Sender: FDA-Public Use
  Company Number: ES-INCYTE CORPORATION-2018IN001560

PATIENT

DRUGS (1)
  1. JAKAVI [Suspect]
     Active Substance: RUXOLITINIB
     Indication: PRODUCT USED FOR UNKNOWN INDICATION
     Dosage: 20 MG, Q12H
     Route: 065
     Dates: start: 20150510, end: 20160811

REACTIONS (26)
  - Erythema [Unknown]
  - Dysphagia [Unknown]
  - Tachycardia [Fatal]
  - Infection [Fatal]
  - Nasopharyngitis [Fatal]
  - Hyperhidrosis [Unknown]
  - Decreased appetite [Unknown]
  - Vomiting [Unknown]
  - Asthenia [Unknown]
  - General physical health deterioration [Unknown]
  - Haematoma [Unknown]
  - Hepatosplenomegaly [Unknown]
  - Pain [Unknown]
  - Oedema [Unknown]
  - Tachypnoea [Fatal]
  - Endocarditis [Fatal]
  - Pain in extremity [Unknown]
  - Chest pain [Fatal]
  - Respiratory failure [Fatal]
  - Jaundice [Fatal]
  - Cough [Unknown]
  - Pyrexia [Unknown]
  - Pallor [Fatal]
  - Staphylococcal infection [Fatal]
  - Abdominal abscess [Fatal]
  - Leukocytosis [Unknown]

NARRATIVE: CASE EVENT DATE: 20160802
